FAERS Safety Report 9467229 (Version 2)
Quarter: 2013Q3

REPORT INFORMATION
  Report Type: Spontaneous
  Country: AT (occurrence: AT)
  Receive Date: 20130821
  Receipt Date: 20130821
  Transmission Date: 20140515
  Serious: Yes (Other)
  Sender: FDA-Public Use
  Company Number: AT-ROCHE-1262985

PATIENT
  Sex: Female

DRUGS (14)
  1. AVASTIN [Suspect]
     Indication: PRODUCT USED FOR UNKNOWN INDICATION
     Dosage: CUMULATIVE DOSE: 9000 MG
     Route: 065
     Dates: start: 200911
  2. AVASTIN [Suspect]
     Dosage: CUMULATIVE DOSE: : 6000 MG; MAINTENANCE FOR 6 CYCLES.
     Route: 065
     Dates: start: 201005
  3. AVASTIN [Suspect]
     Dosage: CUMULATIVE DOSE: 5360 MG;  FOR 8 CYCLES
     Route: 065
     Dates: start: 201112
  4. AVASTIN [Suspect]
     Dosage: CUMULATIVE DOSE: 1340 MG
     Route: 065
  5. HERCEPTIN [Suspect]
     Indication: PRODUCT USED FOR UNKNOWN INDICATION
     Dosage: CUMULATIVE DOSE: 3360 MG
     Route: 065
     Dates: start: 200911
  6. HERCEPTIN [Suspect]
     Dosage: CUMULATIVE DOSE: 2460 MG; MAINTENANCE DOSE FOR 6 CYCLES
     Route: 065
     Dates: start: 201005
  7. HERCEPTIN [Suspect]
     Dosage: CUMULATIVE DOSE: 980 MG; FOR 2 CYCLES
     Route: 065
     Dates: start: 201012
  8. HERCEPTIN [Suspect]
     Dosage: CUMULATIVE DOSE: 2280 MG; FOR 6 CYCLES.
     Route: 065
     Dates: start: 201107
  9. HERCEPTIN [Suspect]
     Route: 065
     Dates: start: 201207
  10. XELODA [Suspect]
     Indication: PRODUCT USED FOR UNKNOWN INDICATION
     Route: 065
     Dates: start: 201112
  11. DOCETAXEL [Suspect]
     Indication: PRODUCT USED FOR UNKNOWN INDICATION
     Dosage: CUMULATIVE DOSE: 1530 MG
     Route: 065
     Dates: start: 200911
  12. LAPATINIB [Suspect]
     Indication: PRODUCT USED FOR UNKNOWN INDICATION
     Route: 065
     Dates: start: 201102, end: 201107
  13. DOXORUBICIN [Suspect]
     Indication: PRODUCT USED FOR UNKNOWN INDICATION
     Dosage: CUMULATIVE DOSE: 360 MG; FOR 6 CYCLES
     Route: 065
     Dates: start: 201102
  14. CARBOPLATIN [Suspect]
     Indication: PRODUCT USED FOR UNKNOWN INDICATION
     Dosage: CUMULATIVE DOSE: 2400 MG; FOR 6 CYCLES
     Route: 065
     Dates: start: 201107

REACTIONS (3)
  - Disease progression [Unknown]
  - Metastases to lymph nodes [Unknown]
  - Palmar-plantar erythrodysaesthesia syndrome [Unknown]
